FAERS Safety Report 14141291 (Version 1)
Quarter: 2017Q4

REPORT INFORMATION
  Report Type: Spontaneous
  Country: CH (occurrence: CH)
  Receive Date: 20171030
  Receipt Date: 20171030
  Transmission Date: 20180321
  Serious: Yes (Hospitalization, Disabling, Other)
  Sender: FDA-Public Use
  Company Number: CH-BAYER-2017-047226

PATIENT
  Age: 20 Year
  Sex: Female

DRUGS (1)
  1. JAYDESS [Suspect]
     Active Substance: LEVONORGESTREL
     Dosage: 14 MCG/24HR, CONT
     Route: 015
     Dates: start: 20160823, end: 20170328

REACTIONS (4)
  - Abdominal pain lower [Recovering/Resolving]
  - Ovarian mass [None]
  - Ectopic pregnancy with contraceptive device [Recovering/Resolving]
  - Drug ineffective [None]

NARRATIVE: CASE EVENT DATE: 20170211
